FAERS Safety Report 24782698 (Version 1)
Quarter: 2024Q4

REPORT INFORMATION
  Report Type: Spontaneous
  Country: US (occurrence: None)
  Receive Date: 20241226
  Receipt Date: 20241226
  Transmission Date: 20250115
  Serious: Yes (Disabling)
  Sender: Public
  Company Number: None

PATIENT
  Age: 22 Year
  Sex: Male
  Weight: 69.75 kg

DRUGS (6)
  1. CELEXA [Suspect]
     Active Substance: CITALOPRAM HYDROBROMIDE
     Indication: Anxiety
     Dates: start: 20181111, end: 20220722
  2. MELATONIN [Concomitant]
     Active Substance: MELATONIN
  3. MAGNESIUM GLYCINATE [Concomitant]
     Active Substance: MAGNESIUM GLYCINATE
  4. OMEGA 3 [Concomitant]
     Active Substance: CAPSAICIN
  5. ARGININE [Concomitant]
     Active Substance: ARGININE
  6. DIETARY SUPPLEMENT [Concomitant]
     Active Substance: DIETARY SUPPLEMENT

REACTIONS (7)
  - Sexual dysfunction [None]
  - Intentional self-injury [None]
  - Emotional disorder [None]
  - Electric shock sensation [None]
  - Negative thoughts [None]
  - Withdrawal syndrome [None]
  - Haemorrhage [None]

NARRATIVE: CASE EVENT DATE: 20220721
